FAERS Safety Report 8212411-7 (Version None)
Quarter: 2012Q1

REPORT INFORMATION
  Report Type: 
  Country: None (occurrence: None)
  Receive Date: 20120315
  Receipt Date: 20120308
  Transmission Date: 20120608
  Serious: Yes (Hospitalization, Other)
  Sender: FDA-Public Use
  Company Number: US-ALEXION-A201001675

PATIENT
  Sex: Male

DRUGS (13)
  1. IRON [Concomitant]
  2. ASPIRIN [Concomitant]
  3. FOLIC ACID [Concomitant]
  4. PRILOSEC [Concomitant]
  5. DOXASIN [Concomitant]
  6. AMBIEN [Concomitant]
  7. EXJADE [Concomitant]
  8. PREDNISONE TAB [Concomitant]
  9. FLOMAX [Concomitant]
  10. VICODIN [Concomitant]
  11. PHOSLO [Concomitant]
  12. SOLIRIS [Suspect]
     Indication: PAROXYSMAL NOCTURNAL HAEMOGLOBINURIA
     Dosage: UNK
     Route: 042
  13. CITALOPRAM HYDROBROMIDE [Concomitant]

REACTIONS (5)
  - BLOOD PRESSURE DECREASED [None]
  - PNEUMONIA [None]
  - SEPSIS [None]
  - DIALYSIS [None]
  - RENAL IMPAIRMENT [None]
